FAERS Safety Report 9196842 (Version 1)
Quarter: 2013Q1

REPORT INFORMATION
  Report Type: Spontaneous
  Country: US (occurrence: None)
  Receive Date: 20120709
  Receipt Date: 20120709
  Transmission Date: 20140127
  Serious: No
  Sender: FDA-Public Use
  Company Number: 2012HGS-003612

PATIENT
  Age: 42 Year
  Sex: Female
  Weight: 48.08 kg

DRUGS (12)
  1. BENLYSTA [Suspect]
     Indication: SYSTEMIC LUPUS ERYTHEMATOSUS
     Dosage: 1 IN 28 D, INTRAVENOUS DRIP
     Route: 041
  2. IMURAN (AZATHIOPRINE) (AZATHIOPRINE) [Concomitant]
  3. PLAQUENIL (HYDROXYCHLOROQUINE PHOSPHATE) (HYDROXYCHLOROQUINE PHOSPHATE) [Concomitant]
  4. DILTIAZEM (DILTIAZEM) (DILTIAZEM) [Concomitant]
  5. TOPAMAX (TOPIRAMATE) (TOPIRAMATE) [Concomitant]
  6. ASPIRIN (ACETYLSALICYLIC ACID) (ACETYLSALICYLIC ACID) [Concomitant]
  7. PRILOSEC (OMEPRAZOLE) (OMEPRAZOLE) [Concomitant]
  8. PREDNISONE (PREDNISONE) (PREDNISONE) [Concomitant]
  9. HYDROCHLOROTHIAZIDE (HYDROCHLOROTHIAZIDE) (HYDROCHLOROTHIAZIDE) [Concomitant]
  10. CALCIUM WITH VIT D (CALCIUM D3/01483701/) (COLECALCIFEROL, CALCIUM) [Concomitant]
  11. VITAMIN C (ASCORBIC ACID) (ASCORBIC ACID) [Concomitant]
  12. VITAMIN B (VITAMIN B COMPLEX) (VITAMIN B COMPLEX) [Concomitant]

REACTIONS (1)
  - Urinary tract infection [None]
